FAERS Safety Report 16539669 (Version 1)
Quarter: 2019Q3

REPORT INFORMATION
  Report Type: Spontaneous
  Country: US (occurrence: US)
  Receive Date: 20190708
  Receipt Date: 20190708
  Transmission Date: 20191004
  Serious: Yes (Death, Hospitalization)
  Sender: FDA-Public Use
  Company Number: US-CERECOR, INC.-2019CER00095

PATIENT
  Age: 66 Year
  Sex: Female

DRUGS (1)
  1. PREDNISOLONE. [Suspect]
     Active Substance: PREDNISOLONE
     Indication: RHEUMATOID ARTHRITIS
     Dosage: UNK
     Route: 065

REACTIONS (4)
  - Sepsis [Fatal]
  - Multiple organ dysfunction syndrome [Fatal]
  - Arthritis infective [Fatal]
  - Colonic fistula [Fatal]
